FAERS Safety Report 25180410 (Version 1)
Quarter: 2025Q2

REPORT INFORMATION
  Report Type: Spontaneous
  Country: US (occurrence: US)
  Receive Date: 20250409
  Receipt Date: 20250409
  Transmission Date: 20250717
  Serious: Yes (Other)
  Sender: TAKEDA
  Company Number: US-TAKEDA-2025TUS033206

PATIENT
  Age: 16 Year
  Sex: Female

DRUGS (3)
  1. GUANFACINE HYDROCHLORIDE [Suspect]
     Active Substance: GUANFACINE HYDROCHLORIDE
     Indication: Tourette^s disorder
     Dosage: 0.5 MILLIGRAM, BID
  2. ACTIVATED CHARCOAL [Concomitant]
     Active Substance: ACTIVATED CHARCOAL
  3. SODIUM CHLORIDE [Concomitant]
     Active Substance: SODIUM CHLORIDE

REACTIONS (8)
  - Hyperhidrosis [Unknown]
  - Electrocardiogram QT prolonged [Recovering/Resolving]
  - Dry mouth [Unknown]
  - Presyncope [Unknown]
  - Hypertension [Unknown]
  - Orthostatic hypotension [Unknown]
  - Intentional product misuse [Unknown]
  - Intentional overdose [Unknown]
